FAERS Safety Report 5848873-X (Version None)
Quarter: 2008Q3

REPORT INFORMATION
  Report Type: 
  Country: None (occurrence: None)
  Receive Date: 20080818
  Receipt Date: 20080811
  Transmission Date: 20090109
  Serious: Yes (Hospitalization)
  Sender: FDA-Public Use
  Company Number: GB-PFIZER INC-2008064190

PATIENT
  Sex: Male

DRUGS (2)
  1. LIPITOR [Suspect]
  2. LUSTRAL [Suspect]

REACTIONS (1)
  - GASTRIC BYPASS [None]
